APPROVED DRUG PRODUCT: CALCIUM DISODIUM VERSENATE
Active Ingredient: EDETATE CALCIUM DISODIUM
Strength: 200MG/ML **Federal Register determination that product was not discontinued or withdrawn for safety or effectiveness reasons**
Dosage Form/Route: INJECTABLE;INJECTION
Application: N008922 | Product #001
Applicant: BAUSCH HEALTH US LLC
Approved: Approved Prior to Jan 1, 1982 | RLD: Yes | RS: No | Type: DISCN